FAERS Safety Report 9982008 (Version 1)
Quarter: 2014Q1

REPORT INFORMATION
  Report Type: Report from Study
  Country: US (occurrence: US)
  Receive Date: 20140307
  Receipt Date: 20140307
  Transmission Date: 20141002
  Serious: No
  Sender: FDA-Public Use
  Company Number: US-ABBVIE-13P-163-1177908-00

PATIENT
  Sex: Female
  Weight: 54.48 kg

DRUGS (1)
  1. HUMIRA [Suspect]
     Indication: RHEUMATOID ARTHRITIS
     Route: 058
     Dates: start: 2011

REACTIONS (7)
  - Rhinitis [Not Recovered/Not Resolved]
  - Anxiety [Not Recovered/Not Resolved]
  - Pyrexia [Not Recovered/Not Resolved]
  - Staphylococcal infection [Recovered/Resolved]
  - Nasal oedema [Not Recovered/Not Resolved]
  - Nasal oedema [Recovered/Resolved]
  - Rhinorrhoea [Recovered/Resolved]
